FAERS Safety Report 8243960-3 (Version None)
Quarter: 2012Q1

REPORT INFORMATION
  Report Type: 
  Country: None (occurrence: None)
  Receive Date: 20120329
  Receipt Date: 20111103
  Transmission Date: 20120608
  Serious: No
  Sender: FDA-Public Use
  Company Number: US-MYLANLABS-2011S1020680

PATIENT
  Age: 70 Year
  Sex: Female

DRUGS (6)
  1. SIMVASTATIN [Concomitant]
  2. CITRUCEL [Concomitant]
  3. SYNTHROID [Concomitant]
  4. ESTRADIOL [Suspect]
     Indication: OSTEOPOROSIS
     Dosage: QW
     Route: 062
     Dates: start: 20110517
  5. ESTRADIOL [Suspect]
     Indication: HORMONE REPLACEMENT THERAPY
     Dosage: QW
     Route: 062
     Dates: start: 20110517
  6. CALTRATE + D /00188401/ [Concomitant]

REACTIONS (2)
  - APPLICATION SITE HYPERSENSITIVITY [None]
  - APPLICATION SITE ERYTHEMA [None]
